FAERS Safety Report 10928944 (Version 1)
Quarter: 2015Q1

REPORT INFORMATION
  Report Type: Spontaneous
  Country: US (occurrence: None)
  Receive Date: 20150318
  Receipt Date: 20150318
  Transmission Date: 20150721
  Serious: No
  Sender: FDA-Public Use
  Company Number: None

PATIENT
  Age: 32 Year
  Sex: Female
  Weight: 56.7 kg

DRUGS (12)
  1. VYVANSE [Concomitant]
     Active Substance: LISDEXAMFETAMINE DIMESYLATE
  2. KRILL [Concomitant]
  3. GUANFACINE ER [Suspect]
     Active Substance: GUANFACINE
     Indication: ATTENTION DEFICIT/HYPERACTIVITY DISORDER
     Dosage: 1 TABLET
     Route: 048
     Dates: start: 20150220, end: 20150312
  4. VITAMIN E [Concomitant]
     Active Substance: .ALPHA.-TOCOPHEROL
  5. TURMERIC [Concomitant]
     Active Substance: TURMERIC
  6. GUANFACINE ER [Suspect]
     Active Substance: GUANFACINE
     Indication: TACHYPHRENIA
     Dosage: 1 TABLET
     Route: 048
     Dates: start: 20150220, end: 20150312
  7. CLONAZAPINE, USP ODT (CLOZAPINE, USP) OCT) (ORAL DISINTEGRATING TABLET) [Concomitant]
     Active Substance: CLOZAPINE
  8. MAGNESIUM [Concomitant]
     Active Substance: MAGNESIUM
  9. ENLYTE [Concomitant]
     Active Substance: CALCIUM ASCORBATE\CALCIUM THREONATE\COBALAMIN\COCARBOXYLASE\FERROUS GLUCONATE\FISH OIL\FLAVIN ADENINE DINUCLEOTIDE\FOLIC ACID\LEUCOVORIN CALCIUM\LEVOMEFOLIC ACID\METHYLCOBALAMIN\NADIDE\PYRIDOXAL 5-PHOSPHATE
  10. VITAMIN D [Concomitant]
     Active Substance: CHOLECALCIFEROL
  11. GUANFACINE ER [Suspect]
     Active Substance: GUANFACINE
     Indication: THOUGHT BLOCKING
     Dosage: 1 TABLET
     Route: 048
     Dates: start: 20150220, end: 20150312
  12. COQ10 [Concomitant]
     Active Substance: UBIDECARENONE

REACTIONS (4)
  - Restlessness [None]
  - Insomnia [None]
  - Drug ineffective [None]
  - Tachyphrenia [None]

NARRATIVE: CASE EVENT DATE: 20150304
